FAERS Safety Report 7880293-9 (Version None)
Quarter: 2011Q4

REPORT INFORMATION
  Report Type: 
  Country: None (occurrence: None)
  Receive Date: 20111101
  Receipt Date: 20111026
  Transmission Date: 20120403
  Serious: Yes (Hospitalization, Other)
  Sender: FDA-Public Use
  Company Number: JP-PFIZER INC-2011252654

PATIENT
  Age: 73 Year
  Sex: Female

DRUGS (3)
  1. CORTRIL [Suspect]
     Indication: ISOLATED ADRENOCORTICOTROPIC HORMONE DEFICIENCY
     Dosage: 15 MG DAILY
     Route: 048
  2. CORTRIL [Suspect]
     Dosage: 30 MG DAILY
     Route: 048
     Dates: start: 20110920
  3. MEROPENEM [Concomitant]

REACTIONS (3)
  - SURGERY [None]
  - PANCREATITIS [None]
  - PYREXIA [None]
